FAERS Safety Report 12422459 (Version 1)
Quarter: 2016Q2

REPORT INFORMATION
  Report Type: Spontaneous
  Country: US (occurrence: US)
  Receive Date: 20160601
  Receipt Date: 20160601
  Transmission Date: 20160815
  Serious: Yes (Other)
  Sender: FDA-Public Use
  Company Number: US-AMGEN-USASP2016068204

PATIENT

DRUGS (2)
  1. SUTENT [Concomitant]
     Active Substance: SUNITINIB MALATE
     Dosage: UNK
  2. XGEVA [Suspect]
     Active Substance: DENOSUMAB
     Indication: PRODUCT USED FOR UNKNOWN INDICATION
     Dosage: UNK
     Route: 065

REACTIONS (10)
  - Apathy [Unknown]
  - Jaw disorder [Unknown]
  - Fatigue [Unknown]
  - Pelvic fracture [Unknown]
  - Decreased appetite [Unknown]
  - Drug interaction [Unknown]
  - Metastases to bone [Unknown]
  - Mouth ulceration [Unknown]
  - Diarrhoea [Unknown]
  - Intellectual disability [Unknown]
